FAERS Safety Report 6821109-9 (Version None)
Quarter: 2010Q3

REPORT INFORMATION
  Report Type: 
  Country: None (occurrence: None)
  Receive Date: 20100707
  Receipt Date: 20080212
  Transmission Date: 20110219
  Serious: No
  Sender: FDA-Public Use
  Company Number: US-PFIZER INC-2008013535

PATIENT
  Sex: Female

DRUGS (3)
  1. ZOLOFT [Suspect]
     Indication: DEPRESSION
     Dates: start: 20010101
  2. ZOLOFT [Suspect]
     Indication: OBSESSIVE-COMPULSIVE DISORDER
  3. TRAMADOL [Concomitant]

REACTIONS (5)
  - DEPRESSION [None]
  - DYSKINESIA [None]
  - FEELING JITTERY [None]
  - HYPOAESTHESIA [None]
  - PARAESTHESIA [None]
